FAERS Safety Report 10956725 (Version 1)
Quarter: 2015Q1

REPORT INFORMATION
  Report Type: Spontaneous
  Country: US (occurrence: US)
  Receive Date: 20150326
  Receipt Date: 20150326
  Transmission Date: 20150721
  Serious: Yes (Other)
  Sender: FDA-Public Use
  Company Number: US-JNJFOC-20150311114

PATIENT
  Age: 24 Month
  Sex: Female
  Weight: 15.42 kg

DRUGS (1)
  1. NEOSPORIN PLUS PAIN RELIEF FIRST AID ANTIBIOTIC PAIN RELIEVING FOR KIDS [Suspect]
     Active Substance: NEOMYCIN\POLYMYXIN B\PRAMOXINE HYDROCHLORIDE
     Indication: SKIN ABRASION
     Dosage: SMALLER THAN A PEA SIZE, APPLIED TWICE
     Route: 061
     Dates: end: 20150302

REACTIONS (5)
  - Hypersensitivity [Not Recovered/Not Resolved]
  - Staphylococcal infection [Not Recovered/Not Resolved]
  - Drug ineffective [Unknown]
  - Application site pain [None]
  - Application site swelling [None]
